FAERS Safety Report 24643055 (Version 6)
Quarter: 2025Q3

REPORT INFORMATION
  Report Type: Report from Study
  Country: JP (occurrence: JP)
  Receive Date: 20241120
  Receipt Date: 20250827
  Transmission Date: 20251020
  Serious: Yes (Hospitalization)
  Sender: PFIZER
  Company Number: JP-PFIZER INC-PV202400148115

PATIENT
  Age: 65 Year
  Sex: Female
  Weight: 39.5 kg

DRUGS (18)
  1. ELRANATAMAB [Suspect]
     Active Substance: ELRANATAMAB
     Indication: Plasma cell myeloma refractory
     Route: 058
     Dates: start: 20240604, end: 20240604
  2. ELRANATAMAB [Suspect]
     Active Substance: ELRANATAMAB
     Route: 058
     Dates: start: 20240607, end: 20240607
  3. ELRANATAMAB [Suspect]
     Active Substance: ELRANATAMAB
     Dosage: 76 MG, ONCE A WEEK
     Route: 058
     Dates: start: 20240611, end: 20241030
  4. ACYCLOVIR [Concomitant]
     Active Substance: ACYCLOVIR
     Indication: Infection prophylaxis
     Route: 048
     Dates: start: 20201224
  5. FEBUXOSTAT [Concomitant]
     Active Substance: FEBUXOSTAT
     Indication: Prophylaxis
     Route: 048
     Dates: start: 20201224
  6. ASPIRIN [Concomitant]
     Active Substance: ASPIRIN
     Indication: Prophylaxis
     Route: 048
     Dates: start: 20201224
  7. CALCIUM CARBONATE\CHOLECALCIFEROL\MAGNESIUM CARBONATE [Concomitant]
     Active Substance: CALCIUM CARBONATE\CHOLECALCIFEROL\MAGNESIUM CARBONATE
     Indication: Prophylaxis
     Route: 048
     Dates: start: 20201213
  8. ESOMEPRAZOLE [Concomitant]
     Active Substance: ESOMEPRAZOLE
     Indication: Prophylaxis
     Route: 048
     Dates: start: 20230215
  9. ANASTROZOLE [Concomitant]
     Active Substance: ANASTROZOLE
     Indication: Breast cancer
     Route: 048
  10. ATORVASTATIN [Concomitant]
     Active Substance: ATORVASTATIN
     Indication: Dyslipidaemia
     Route: 048
     Dates: start: 20201209
  11. IPRAGLIFLOZIN L-PROLINE [Concomitant]
     Active Substance: IPRAGLIFLOZIN L-PROLINE
     Indication: Diabetes mellitus
     Route: 048
     Dates: start: 20201224
  12. ELOBIXIBAT [Concomitant]
     Active Substance: ELOBIXIBAT
     Indication: Constipation prophylaxis
     Route: 048
  13. SULFAMETHOXAZOLE\TRIMETHOPRIM [Concomitant]
     Active Substance: SULFAMETHOXAZOLE\TRIMETHOPRIM
     Indication: Infection prophylaxis
     Route: 048
     Dates: start: 20210119
  14. DAPRODUSTAT [Concomitant]
     Active Substance: DAPRODUSTAT
     Indication: Nephrogenic anaemia
     Dates: start: 20241016
  15. ZOLPIDEM [Concomitant]
     Active Substance: ZOLPIDEM TARTRATE
     Indication: Insomnia
     Route: 048
     Dates: start: 20241016
  16. BROTIZOLAM [Concomitant]
     Active Substance: BROTIZOLAM
     Indication: Insomnia
     Route: 048
     Dates: start: 20191001
  17. PREGABALIN [Concomitant]
     Active Substance: PREGABALIN
     Indication: Hypoaesthesia
     Route: 048
     Dates: start: 20220413
  18. EPINASTINE [Concomitant]
     Active Substance: EPINASTINE HYDROCHLORIDE
     Indication: Allergy prophylaxis
     Route: 048
     Dates: start: 20230426

REACTIONS (1)
  - Cytomegalovirus infection [Recovering/Resolving]

NARRATIVE: CASE EVENT DATE: 20241106
